FAERS Safety Report 6795968-2 (Version None)
Quarter: 2010Q2

REPORT INFORMATION
  Report Type: 
  Country: None (occurrence: None)
  Receive Date: 20100625
  Receipt Date: 20100617
  Transmission Date: 20101027
  Serious: Yes (Hospitalization)
  Sender: FDA-Public Use
  Company Number: B0662435A

PATIENT
  Age: 28 Year
  Sex: Male
  Weight: 65 kg

DRUGS (1)
  1. SERETIDE [Suspect]
     Indication: CHRONIC TONSILLITIS
     Dosage: 125MG PER DAY
     Route: 065

REACTIONS (2)
  - DYSPNOEA [None]
  - RESPIRATORY DISORDER [None]
